FAERS Safety Report 6891552-0 (Version None)
Quarter: 2010Q3

REPORT INFORMATION
  Report Type: 
  Country: None (occurrence: None)
  Receive Date: 20100731
  Receipt Date: 20070827
  Transmission Date: 20110219
  Serious: No
  Sender: FDA-Public Use
  Company Number: US-PFIZER INC-2007069657

PATIENT
  Sex: Female
  Weight: 71.67 kg

DRUGS (11)
  1. NEURONTIN [Suspect]
     Indication: NEUROPATHY PERIPHERAL
  2. LOSARTAN POSTASSIUM [Concomitant]
  3. NORVASC [Concomitant]
  4. PROTONIX [Concomitant]
  5. ALL OTHER THERAPEUTIC PRODUCTS [Concomitant]
  6. LASIX [Concomitant]
  7. POTASSIUM CHLORIDE [Concomitant]
  8. FOSAMAX [Concomitant]
  9. ZETIA [Concomitant]
  10. MOMETASONE FUROATE [Concomitant]
  11. PRAVACHOL [Concomitant]

REACTIONS (1)
  - ANAESTHETIC COMPLICATION [None]
